FAERS Safety Report 20668532 (Version 2)
Quarter: 2022Q2

REPORT INFORMATION
  Report Type: Spontaneous
  Country: US (occurrence: US)
  Receive Date: 20220404
  Receipt Date: 20220513
  Transmission Date: 20220721
  Serious: Yes (Other)
  Sender: FDA-Public Use
  Company Number: US-GLENMARK PHARMACEUTICALS-2022GMK071172

PATIENT

DRUGS (2)
  1. DROSPIRENONE\ETHINYL ESTRADIOL [Suspect]
     Active Substance: DROSPIRENONE\ETHINYL ESTRADIOL
     Indication: Contraception
     Dosage: UNK, 1 ACTIVE TABLET FOR 21 DAYS THEN 7 DAYS OF INERT.
     Route: 048
     Dates: start: 20220213
  2. DROSPIRENONE\ETHINYL ESTRADIOL [Suspect]
     Active Substance: DROSPIRENONE\ETHINYL ESTRADIOL
     Dosage: UNK
     Route: 048

REACTIONS (7)
  - Bipolar disorder [Unknown]
  - Agitation [Unknown]
  - Mental disorder [Recovering/Resolving]
  - Adverse drug reaction [Unknown]
  - Depression [Unknown]
  - Product blister packaging issue [Unknown]
  - Product colour issue [Unknown]

NARRATIVE: CASE EVENT DATE: 20220213
